FAERS Safety Report 23259475 (Version 1)
Quarter: 2023Q4

REPORT INFORMATION
  Report Type: Spontaneous
  Country: NL (occurrence: NL)
  Receive Date: 20231204
  Receipt Date: 20231204
  Transmission Date: 20240110
  Serious: Yes (Other)
  Sender: FDA-Public Use
  Company Number: None

PATIENT
  Age: 38 Year
  Sex: Female
  Weight: 60 kg

DRUGS (1)
  1. RINVOQ [Suspect]
     Active Substance: UPADACITINIB
     Indication: Colitis ulcerative
     Dosage: 1X PER DAG 1 STUK?FORM STRENGTH 45 MG
     Route: 048
     Dates: start: 20231027

REACTIONS (1)
  - Omental infarction [Recovering/Resolving]

NARRATIVE: CASE EVENT DATE: 20230101
